FAERS Safety Report 6614571-8 (Version None)
Quarter: 2010Q1

REPORT INFORMATION
  Report Type: 
  Country: None (occurrence: None)
  Receive Date: 20100304
  Receipt Date: 20100304
  Transmission Date: 20100710
  Serious: Yes (Disabling)
  Sender: FDA-Public Use
  Company Number: None

PATIENT
  Age: 33 Year
  Sex: Female
  Weight: 97.977 kg

DRUGS (1)
  1. CELEBREX [Suspect]
     Indication: ARTHRITIS
     Dosage: 200MG 1 DAILY PO
     Route: 048
     Dates: start: 20100108, end: 20100222

REACTIONS (5)
  - PAIN OF SKIN [None]
  - PHARYNGITIS STREPTOCOCCAL [None]
  - RASH ERYTHEMATOUS [None]
  - RASH PRURITIC [None]
  - SKIN EXFOLIATION [None]
